FAERS Safety Report 5139641-5 (Version None)
Quarter: 2006Q4

REPORT INFORMATION
  Report Type: 
  Country: None (occurrence: None)
  Receive Date: 20061023
  Receipt Date: 20040823
  Transmission Date: 20070319
  Serious: Yes (Hospitalization)
  Sender: FDA-Public Use
  Company Number: WAES 0408SWE00001

PATIENT
  Age: 12 Month
  Sex: Male

DRUGS (2)
  1. SINGULAIR  SPRINKLES   (MONTELUKAST SODIUM) [Suspect]
     Indication: RESPIRATORY SYNCYTIAL VIRUS INFECTION
     Dosage: 4 MG/DAILY, PO
     Route: 048
     Dates: start: 20040311, end: 20040623
  2. FERROUS SUCCINATE [Concomitant]

REACTIONS (4)
  - BLOOD PRESSURE DIASTOLIC DECREASED [None]
  - HAEMATOCRIT DECREASED [None]
  - HAEMOGLOBIN DECREASED [None]
  - HENOCH-SCHONLEIN PURPURA [None]
